FAERS Safety Report 7550846-6 (Version None)
Quarter: 2011Q2

REPORT INFORMATION
  Report Type: 
  Country: None (occurrence: None)
  Receive Date: 20110616
  Receipt Date: 20110614
  Transmission Date: 20111010
  Serious: Yes (Other)
  Sender: FDA-Public Use
  Company Number: US-PFIZER INC-2011131056

PATIENT
  Sex: Female
  Weight: 68.481 kg

DRUGS (7)
  1. DIOVAN HCT [Concomitant]
     Indication: CARDIAC FAILURE CONGESTIVE
     Dosage: UNK
  2. SYNTHROID [Concomitant]
     Indication: HYPOTHYROIDISM
     Dosage: UNK
  3. VALSARTAN [Concomitant]
     Indication: HYPERTENSION
     Dosage: UNK
  4. LOTREL [Concomitant]
     Indication: HYPERTENSION
     Dosage: UNK
  5. PREDNISONE [Concomitant]
     Indication: CHRONIC OBSTRUCTIVE PULMONARY DISEASE
     Dosage: UNK
  6. DEPO-MEDROL [Suspect]
     Indication: CHRONIC OBSTRUCTIVE PULMONARY DISEASE
     Dosage: 80 MG, UNK
     Route: 030
     Dates: start: 20110614, end: 20110614
  7. WARFARIN [Concomitant]
     Indication: CARDIAC FAILURE CONGESTIVE
     Dosage: UNK

REACTIONS (1)
  - ANAPHYLACTIC SHOCK [None]
